FAERS Safety Report 7701431-4 (Version None)
Quarter: 2011Q3

REPORT INFORMATION
  Report Type: 
  Country: None (occurrence: None)
  Receive Date: 20110819
  Receipt Date: 20110819
  Transmission Date: 20111222
  Serious: Yes (Hospitalization)
  Sender: FDA-Public Use
  Company Number: None

PATIENT
  Age: 56 Year
  Sex: Male
  Weight: 81.8 kg

DRUGS (2)
  1. RIBAVIRIN [Suspect]
     Indication: HEPATITIS C
     Dosage: 600 MG BID PO
     Route: 048
     Dates: start: 20110629, end: 20110815
  2. PEGINTERFERON [Suspect]
     Indication: HEPATITIS C
     Dosage: 180 MG QWEEK SQ
     Route: 058
     Dates: start: 20110629, end: 20110815

REACTIONS (1)
  - ANAEMIA [None]
